FAERS Safety Report 7691750-2 (Version None)
Quarter: 2011Q3

REPORT INFORMATION
  Report Type: 
  Country: None (occurrence: None)
  Receive Date: 20110818
  Receipt Date: 20110812
  Transmission Date: 20111222
  Serious: Yes (Hospitalization)
  Sender: FDA-Public Use
  Company Number: JP-GLAXOSMITHKLINE-B0736475A

PATIENT
  Sex: Male

DRUGS (13)
  1. DESYREL [Concomitant]
     Indication: DEPRESSION
     Dosage: 50MG PER DAY
     Route: 048
     Dates: end: 20110726
  2. PAXIL [Concomitant]
     Indication: BIPOLAR DISORDER
     Dosage: 20MG PER DAY
     Route: 048
     Dates: end: 20110726
  3. FLUNITRAZEPAM [Concomitant]
     Dosage: 2MG PER DAY
     Route: 048
  4. U PAN [Concomitant]
     Dosage: 1.5MG PER DAY
     Route: 048
  5. ALLOPURINOL [Concomitant]
  6. LITHIUM CARBONATE [Concomitant]
     Indication: BIPOLAR DISORDER
     Dosage: 600MG PER DAY
     Route: 048
     Dates: end: 20110726
  7. ALLOPURINOL [Concomitant]
     Indication: HYPERURICAEMIA
     Dosage: 200MG PER DAY
     Route: 048
     Dates: end: 20110726
  8. SENNOSIDE [Concomitant]
     Dosage: 3IUAX PER DAY
     Route: 048
  9. LAMICTAL [Suspect]
     Indication: BIPOLAR DISORDER
     Dosage: 25MG TWICE PER DAY
     Route: 048
     Dates: start: 20110616
  10. LAMICTAL [Suspect]
     Dosage: 50MG PER DAY
     Route: 048
     Dates: end: 20110719
  11. DEPAKENE [Suspect]
     Indication: BIPOLAR DISORDER
     Dosage: 400MG PER DAY
     Route: 048
     Dates: start: 20110402, end: 20110726
  12. ZOLPIDEM [Concomitant]
     Dosage: 10MG PER DAY
     Route: 048
  13. ANTICONVULSANT [Concomitant]

REACTIONS (16)
  - SOMNOLENCE [None]
  - SKIN LESION [None]
  - EYE DISCHARGE [None]
  - STEVENS-JOHNSON SYNDROME [None]
  - NASOPHARYNGITIS [None]
  - DIZZINESS [None]
  - ORAL DISORDER [None]
  - MALAISE [None]
  - HYPERTHERMIA [None]
  - OROPHARYNGEAL PAIN [None]
  - OVERDOSE [None]
  - PYREXIA [None]
  - HYPERAEMIA [None]
  - ERYTHEMA [None]
  - RASH MACULO-PAPULAR [None]
  - RASH [None]
